FAERS Safety Report 15462996 (Version 5)
Quarter: 2018Q4

REPORT INFORMATION
  Report Type: Spontaneous
  Country: US (occurrence: US)
  Receive Date: 20181004
  Receipt Date: 20181128
  Transmission Date: 20190204
  Serious: No
  Sender: FDA-Public Use
  Company Number: US-PFIZER INC-2018400859

PATIENT
  Age: 71 Year
  Sex: Female

DRUGS (16)
  1. L-THEANINE [Concomitant]
     Active Substance: DIETARY SUPPLEMENT
     Indication: STRESS
     Dosage: UNK UNK, AS NEEDED
  2. FEMARA [Concomitant]
     Active Substance: LETROZOLE
     Dosage: UNK
  3. LETROZOLE. [Suspect]
     Active Substance: LETROZOLE
     Indication: BREAST CANCER RECURRENT
     Dosage: 2.5 MG, AS NEEDED (1 PER DAY 2.5 MG )
     Dates: start: 201805
  4. VITAMIN C WITH ROSE HIPS [ASCORBIC ACID;ROSA CANINA] [Concomitant]
     Indication: NASOPHARYNGITIS
     Dosage: 1000 MG, 1X/DAY
  5. GLUCOSAMINE/CHONDROITIN [CHONDROITIN SULFATE SODIUM;GLUCOSAMINE HYDROC [Concomitant]
     Indication: ARTHROPATHY
     Dosage: UNK UNK, 2X/DAY (GLUCOSAMINE HYDROCHLORIDE- 1500 MG; CHONDROITIN SULFATE- 1200 MG)
  6. VITAMIN D3 [Concomitant]
     Active Substance: CHOLECALCIFEROL
     Indication: SUPPLEMENTATION THERAPY
     Dosage: 2000 IU, 1X/DAY
  7. MELATONIN ULTRA [Concomitant]
     Indication: INSOMNIA
     Dosage: UNK UNK, 1X/DAY (1-2 TABLETS NIGHTY)
  8. HYDROCHLOROTHIAZIDE. [Concomitant]
     Active Substance: HYDROCHLOROTHIAZIDE
     Indication: LYMPHOEDEMA
     Dosage: 25 MG, 1X/DAY
     Dates: start: 2009
  9. GLUCOSAMINE AND CHONDROITIN SULFATE [Concomitant]
     Dosage: UNK
  10. ASPIRIN [ACETYLSALICYLIC ACID] [Concomitant]
     Active Substance: ASPIRIN
     Dosage: 81 MG, UNK
  11. IBRANCE [Suspect]
     Active Substance: PALBOCICLIB
     Indication: BREAST CANCER RECURRENT
     Dosage: 125 MG, CYCLIC (ONCE A DAY FOR 21 DAYS)
     Dates: start: 20180513
  12. PANTOPRAZOLE [Concomitant]
     Active Substance: PANTOPRAZOLE
     Indication: GASTROOESOPHAGEAL REFLUX DISEASE
     Dosage: 40 MG, AS NEEDED
     Dates: start: 2012
  13. SUPER B COMPLEX [VITAMIN B COMPLEX] [Concomitant]
     Dosage: UNK UNK, 1X/DAY
  14. VITAMIN C WITH ROSE HIPS [ASCORBIC ACID;ROSA CANINA] [Concomitant]
     Indication: MALAISE
  15. XGEVA [Concomitant]
     Active Substance: DENOSUMAB
     Dosage: UNK UNK, MONTHLY (ONCE PER MONTH)
     Dates: start: 201805
  16. CITRACAL CALCIUM PEARLS + D3 [Concomitant]
     Indication: BONE DISORDER
     Dosage: UNK UNK, 1X/DAY (VITAMIN D (AS VITAMIN D3) 500 UI/ CALCIUM (ELEMENTAL) 630 MG)

REACTIONS (2)
  - Rash [Not Recovered/Not Resolved]
  - Alopecia [Recovering/Resolving]

NARRATIVE: CASE EVENT DATE: 201806
